FAERS Safety Report 10268586 (Version 1)
Quarter: 2014Q2

REPORT INFORMATION
  Report Type: Spontaneous
  Country: US (occurrence: None)
  Receive Date: 20140627
  Receipt Date: 20140627
  Transmission Date: 20141212
  Serious: Yes (Other)
  Sender: FDA-Public Use
  Company Number: None

PATIENT
  Age: 21 Year
  Sex: Female
  Weight: 81.65 kg

DRUGS (1)
  1. MEFLOQUINE MEFLOQUINE HCI 250 MG [Suspect]
     Indication: MALARIA PROPHYLAXIS
     Dosage: 1 PILL TAKEN BY MOUTH
     Route: 048
     Dates: start: 20140505, end: 20140617

REACTIONS (6)
  - Headache [None]
  - Panic attack [None]
  - Confusional state [None]
  - Abnormal dreams [None]
  - Depression [None]
  - Abnormal behaviour [None]
